FAERS Safety Report 9775075 (Version 1)
Quarter: 2013Q4

REPORT INFORMATION
  Report Type: Spontaneous
  Country: US (occurrence: US)
  Receive Date: 20131220
  Receipt Date: 20131220
  Transmission Date: 20140711
  Serious: No
  Sender: FDA-Public Use
  Company Number: US-GLAXOSMITHKLINE-A1047320A

PATIENT
  Age: 41 Year
  Sex: Male

DRUGS (7)
  1. AVODART [Suspect]
     Indication: BENIGN PROSTATIC HYPERPLASIA
     Dosage: 1CAP PER DAY
     Route: 048
     Dates: start: 20130528
  2. ANTIDEPRESSANTS [Concomitant]
  3. FLUOXETINE [Concomitant]
  4. CLONAZEPAM [Concomitant]
  5. DOXAZOSIN [Concomitant]
  6. AMLODIPINE [Concomitant]
  7. BABY ASPIRIN [Concomitant]

REACTIONS (1)
  - Drug ineffective [Unknown]
